FAERS Safety Report 14039929 (Version 2)
Quarter: 2018Q1

REPORT INFORMATION
  Report Type: Report from Study
  Country: US (occurrence: US)
  Receive Date: 20171004
  Receipt Date: 20180310
  Transmission Date: 20180508
  Serious: Yes (Other)
  Sender: FDA-Public Use
  Company Number: PHEH2017US031819

PATIENT
  Age: 55 Year
  Sex: Female

DRUGS (1)
  1. GILENYA [Suspect]
     Active Substance: FINGOLIMOD HYDROCHLORIDE
     Indication: MULTIPLE SCLEROSIS
     Dosage: 0.5 MG, QD
     Route: 048
     Dates: start: 20170817

REACTIONS (5)
  - Gait inability [Unknown]
  - Eye pain [Unknown]
  - Road traffic accident [Unknown]
  - Limb injury [Unknown]
  - Joint injury [Unknown]

NARRATIVE: CASE EVENT DATE: 20170820
